FAERS Safety Report 4404342-5 (Version None)
Quarter: 2004Q3

REPORT INFORMATION
  Report Type: 
  Country: None (occurrence: None)
  Receive Date: 20040714
  Receipt Date: 20040708
  Transmission Date: 20050211
  Serious: Yes (Hospitalization)
  Sender: FDA-Public Use
  Company Number: 601384

PATIENT
  Age: 47 Year
  Sex: Male
  Weight: 98.4306 kg

DRUGS (7)
  1. GAMMAGARD S/D [Suspect]
     Indication: CHRONIC INFLAMMATORY DEMYELINATING POLYRADICULONEUROPATHY
     Dosage: 100 GM; Q2W; INTRAVENOUS
     Route: 042
     Dates: start: 20040702, end: 20040702
  2. GAMMAGARD S/D [Suspect]
  3. MULTI-VITAMIN [Concomitant]
  4. TYLENOL [Concomitant]
  5. BENADRYL [Concomitant]
  6. IBUPROFEN [Concomitant]
  7. TOPICAL OINTMENT [Concomitant]

REACTIONS (1)
  - CEREBROVASCULAR ACCIDENT [None]
